FAERS Safety Report 7400557-2 (Version None)
Quarter: 2011Q1

REPORT INFORMATION
  Report Type: 
  Country: None (occurrence: None)
  Receive Date: 20110329
  Receipt Date: 20110321
  Transmission Date: 20110831
  Serious: Yes (Hospitalization)
  Sender: FDA-Public Use
  Company Number: UTC-005840

PATIENT
  Age: 39 Year
  Sex: Female

DRUGS (5)
  1. LETAIRIS [Concomitant]
  2. ADCIRCA [Concomitant]
  3. TYVASO [Suspect]
     Indication: PULMONARY ARTERIAL HYPERTENSION
     Dosage: 216 MCG (54 MCG, 4 IN 1 D),INHALATION
     Route: 055
     Dates: start: 20100910
  4. DIURETICS (DIURETICS) [Concomitant]
  5. COUMADIN [Concomitant]

REACTIONS (3)
  - FATIGUE [None]
  - COUGH [None]
  - DYSPNOEA [None]
